FAERS Safety Report 7414968-2 (Version None)
Quarter: 2011Q2

REPORT INFORMATION
  Report Type: 
  Country: None (occurrence: None)
  Receive Date: 20110414
  Receipt Date: 20110404
  Transmission Date: 20111010
  Serious: Yes (Disabling, Other)
  Sender: FDA-Public Use
  Company Number: US-ROCHE-427165

PATIENT
  Sex: Female

DRUGS (1)
  1. ACCUTANE [Suspect]
     Route: 048

REACTIONS (11)
  - JOINT INJURY [None]
  - HEADACHE [None]
  - IRRITABLE BOWEL SYNDROME [None]
  - COLITIS ULCERATIVE [None]
  - ARTHRALGIA [None]
  - MENTAL DISORDER [None]
  - COLONIC FISTULA [None]
  - GASTROINTESTINAL INJURY [None]
  - DEPRESSION [None]
  - CROHN'S DISEASE [None]
  - EMOTIONAL DISORDER [None]
